FAERS Safety Report 7976167-5 (Version None)
Quarter: 2011Q4

REPORT INFORMATION
  Report Type: 
  Country: None (occurrence: None)
  Receive Date: 20111213
  Receipt Date: 20111013
  Transmission Date: 20120403
  Serious: No
  Sender: FDA-Public Use
  Company Number: US-AMGEN-USASP2011053010

PATIENT
  Age: 3 Year
  Sex: Male

DRUGS (1)
  1. ENBREL [Suspect]
     Indication: JUVENILE ARTHRITIS
     Dosage: 12.5 MG, QWK
     Dates: start: 20111001

REACTIONS (2)
  - GINGIVITIS [None]
  - GINGIVAL ERYTHEMA [None]
